FAERS Safety Report 4900544-X (Version None)
Quarter: 2006Q1

REPORT INFORMATION
  Report Type: 
  Country: None (occurrence: None)
  Receive Date: 20060127
  Receipt Date: 20051111
  Transmission Date: 20060701
  Serious: Yes (Death)
  Sender: FDA-Public Use
  Company Number: CLOF-10139

PATIENT
  Age: 72 Year
  Sex: Male

DRUGS (21)
  1. CLOFARABINE [Suspect]
     Indication: ACUTE MYELOID LEUKAEMIA
     Dosage: 30 MG/M2 QD X 5 IV
     Route: 042
     Dates: start: 20050101, end: 20050101
  2. CYTARABINE [Suspect]
     Indication: ACUTE MYELOID LEUKAEMIA
     Dosage: 37.6 MG QD SC
     Route: 058
     Dates: start: 20050101, end: 20050101
  3. AMPHOTERICIN B [Concomitant]
  4. VANCOMYCIN [Concomitant]
  5. CIPRO [Concomitant]
  6. CASPOFUNGIN [Concomitant]
  7. ACYCLOVIR [Concomitant]
  8. METHYLOPREDNISOLONE [Concomitant]
  9. NOREPINEPHRINE [Concomitant]
  10. INTERFERON GAMMA [Concomitant]
  11. FILGRASTIM [Concomitant]
  12. INSULIN [Concomitant]
  13. MIDAZOLAM [Concomitant]
  14. MORPHINE [Concomitant]
  15. LORAZEPAM [Concomitant]
  16. HALOPERIDOL [Concomitant]
  17. MEROPENEM [Concomitant]
  18. SARGROMOSTIM [Concomitant]
  19. METRONIDAZOLE [Concomitant]
  20. PANTOPRAZOLE [Concomitant]
  21. CALCIUM CHLORIDE [Concomitant]

REACTIONS (2)
  - INFECTION [None]
  - MULTI-ORGAN FAILURE [None]
